FAERS Safety Report 10485503 (Version 1)
Quarter: 2014Q3

REPORT INFORMATION
  Report Type: Report from Study
  Country: US (occurrence: US)
  Receive Date: 20140930
  Receipt Date: 20140930
  Transmission Date: 20150326
  Serious: Yes (Other)
  Sender: FDA-Public Use
  Company Number: US-ALEXION PHARMACEUTICALS INC-A201002331

PATIENT
  Sex: Male

DRUGS (1)
  1. SOLIRIS [Suspect]
     Active Substance: ECULIZUMAB
     Indication: PAROXYSMAL NOCTURNAL HAEMOGLOBINURIA
     Dosage: UNK
     Route: 042

REACTIONS (10)
  - Pain [Unknown]
  - Prostatic operation [Unknown]
  - Atrial fibrillation [Unknown]
  - Oedema [Unknown]
  - Discomfort [Unknown]
  - Fatigue [Unknown]
  - Nausea [Unknown]
  - Lymphoedema [Unknown]
  - Pleural effusion [Unknown]
  - Obesity [Unknown]
